FAERS Safety Report 11627895 (Version 1)
Quarter: 2015Q4

REPORT INFORMATION
  Report Type: Spontaneous
  Country: US (occurrence: None)
  Receive Date: 20151013
  Receipt Date: 20151013
  Transmission Date: 20160304
  Serious: Yes (Disabling)
  Sender: FDA-Public Use
  Company Number: None

PATIENT
  Age: 53 Year
  Sex: Male
  Weight: 75.75 kg

DRUGS (1)
  1. HUMIRA [Suspect]
     Active Substance: ADALIMUMAB
     Indication: COLITIS ULCERATIVE
     Dosage: 4, 2 THEN 1 EVERY 2 WEEKS?EVERY 2 WEEKS?GIVEN INTO/UNDER THE SKIN
     Dates: start: 20150713, end: 20150821

REACTIONS (6)
  - Vomiting [None]
  - Chronic obstructive pulmonary disease [None]
  - Musculoskeletal chest pain [None]
  - Cough [None]
  - Abdominal pain upper [None]
  - Productive cough [None]

NARRATIVE: CASE EVENT DATE: 20150713
